FAERS Safety Report 8083181-0 (Version None)
Quarter: 2012Q1

REPORT INFORMATION
  Report Type: 
  Country: None (occurrence: None)
  Receive Date: 20120127
  Receipt Date: 20110214
  Transmission Date: 20120608
  Serious: No
  Sender: FDA-Public Use
  Company Number: US-ABBOTT-11P-163-0705239-00

PATIENT
  Age: 46 Year
  Sex: Female

DRUGS (9)
  1. HUMIRA [Suspect]
     Indication: CROHN'S DISEASE
     Dosage: 160 MG LOADING DOSE
     Dates: start: 20110207, end: 20110207
  2. HUMIRA [Suspect]
     Dosage: 80 MG LOADING DOSE
  3. HUMIRA [Suspect]
  4. THORAZINE [Concomitant]
     Indication: DRUG THERAPY
  5. HYDROCODONE BITARTRATE [Concomitant]
     Indication: PAIN
  6. ABILIFY [Concomitant]
     Indication: MANIA
  7. COGENTIN [Concomitant]
     Indication: DRUG THERAPY
  8. UNKNOWN MEDICATION [Concomitant]
     Indication: NAUSEA
  9. CYMBALTA [Concomitant]
     Indication: DEPRESSION

REACTIONS (1)
  - INJECTION SITE PAIN [None]
